APPROVED DRUG PRODUCT: METHAMPHETAMINE HYDROCHLORIDE
Active Ingredient: METHAMPHETAMINE HYDROCHLORIDE
Strength: 5MG
Dosage Form/Route: TABLET;ORAL
Application: A040529 | Product #001
Applicant: ABLE LABORATORIES INC
Approved: Feb 25, 2004 | RLD: No | RS: No | Type: DISCN